FAERS Safety Report 6295570-5 (Version None)
Quarter: 2009Q3

REPORT INFORMATION
  Report Type: 
  Country: None (occurrence: None)
  Receive Date: 20090731
  Receipt Date: 20090717
  Transmission Date: 20100115
  Serious: Yes (Hospitalization, Other)
  Sender: FDA-Public Use
  Company Number: 231923K08USA

PATIENT
  Age: 55 Year
  Sex: Female
  Weight: 77 kg

DRUGS (1)
  1. REBIF [Suspect]
     Indication: MULTIPLE SCLEROSIS
     Dosage: 44 MCG, 3 IN 1 WEEKS, SUBCUTANEOUS
     Route: 058
     Dates: start: 20031128

REACTIONS (4)
  - CORONARY ARTERY OCCLUSION [None]
  - IRRITABILITY [None]
  - MUSCLE SPASMS [None]
  - MYOCARDIAL INFARCTION [None]
